FAERS Safety Report 7387222-5 (Version None)
Quarter: 2011Q1

REPORT INFORMATION
  Report Type: 
  Country: None (occurrence: None)
  Receive Date: 20110331
  Receipt Date: 20110324
  Transmission Date: 20110831
  Serious: Yes (Hospitalization)
  Sender: FDA-Public Use
  Company Number: JP-ALLERGAN-1104213US

PATIENT
  Age: 76 Year
  Sex: Male
  Weight: 53.016 kg

DRUGS (9)
  1. PLAVIX [Suspect]
     Indication: THROMBOSIS
     Dosage: 75 MG, QD
     Route: 048
     Dates: start: 20100527
  2. ARTIST [Suspect]
     Indication: CARDIAC FAILURE
     Dosage: 1.25 MG, BID
     Route: 048
     Dates: start: 20100528, end: 20110121
  3. EPINASTINE HYDROCHLORIDE [Suspect]
     Indication: PRURITUS
     Dosage: 20 MG, QD
     Route: 048
     Dates: start: 20100723
  4. ASPIRIN [Suspect]
     Indication: THROMBOSIS
     Dosage: 100 MG, QD
     Route: 048
     Dates: start: 20100527
  5. BLOPRESS [Suspect]
     Indication: CARDIAC FAILURE
     Dosage: 4 MG, QD
     Route: 048
     Dates: start: 20100512
  6. LASIX [Suspect]
     Indication: PRODUCT USED FOR UNKNOWN INDICATION
     Dosage: 30 MG, QD
     Route: 048
     Dates: start: 20100611
  7. EPLERENONE [Suspect]
     Indication: CARDIAC FAILURE CHRONIC
     Dosage: ONCE DAILY
     Dates: start: 20100917, end: 20101015
  8. TAKEPRON [Suspect]
     Indication: GASTRITIS
     Dosage: 15 MG, QD
     Route: 048
     Dates: start: 20100512
  9. CRESTOR [Suspect]
     Indication: HYPERLIPIDAEMIA
     Dosage: 2.5 MG, QD
     Route: 048
     Dates: start: 20100512

REACTIONS (1)
  - ANGINA PECTORIS [None]
